FAERS Safety Report 8078693-X (Version None)
Quarter: 2012Q1

REPORT INFORMATION
  Report Type: 
  Country: None (occurrence: None)
  Receive Date: 20120124
  Receipt Date: 20120110
  Transmission Date: 20120608
  Serious: Yes (Hospitalization)
  Sender: FDA-Public Use
  Company Number: 2012AP000082

PATIENT
  Age: 74 Year
  Sex: Female

DRUGS (3)
  1. TRAMADOL HCL [Suspect]
     Indication: PRODUCT USED FOR UNKNOWN INDICATION
  2. FLUVASTATIN [Suspect]
     Indication: DYSLIPIDAEMIA
  3. OMEPRAZOLE [Suspect]
     Indication: PRODUCT USED FOR UNKNOWN INDICATION

REACTIONS (5)
  - VOMITING [None]
  - DIARRHOEA [None]
  - RHABDOMYOLYSIS [None]
  - HYPONATRAEMIA [None]
  - GASTROENTERITIS [None]
